FAERS Safety Report 7890051-7 (Version None)
Quarter: 2011Q4

REPORT INFORMATION
  Report Type: 
  Country: None (occurrence: None)
  Receive Date: 20111103
  Receipt Date: 20111031
  Transmission Date: 20120403
  Serious: Yes (Hospitalization)
  Sender: FDA-Public Use
  Company Number: JP-AMGEN-US338256

PATIENT
  Age: 68 Year
  Sex: Female
  Weight: 51 kg

DRUGS (2)
  1. DENOSUMAB [Suspect]
     Indication: OSTEOPOROSIS
     Dosage: UNK BLINDED, Q6MO
     Route: 058
     Dates: start: 20081204, end: 20090224
  2. NEW CALCICHEW D3 [Suspect]
     Dosage: 2 UNK, QD
     Route: 048
     Dates: start: 20081111, end: 20090224

REACTIONS (1)
  - DIZZINESS [None]
